FAERS Safety Report 9436509 (Version 1)
Quarter: 2013Q3

REPORT INFORMATION
  Report Type: Spontaneous
  Country: US (occurrence: US)
  Receive Date: 20130802
  Receipt Date: 20130802
  Transmission Date: 20140515
  Serious: No
  Sender: FDA-Public Use
  Company Number: US-OPTIMER-20130020

PATIENT
  Age: 73 Year
  Sex: Female

DRUGS (9)
  1. DIFICID [Suspect]
     Indication: CLOSTRIDIAL INFECTION
     Dosage: 200 MG, BID
     Route: 048
     Dates: start: 20130119, end: 201301
  2. VITAMIN C [Concomitant]
     Indication: VITAMIN SUPPLEMENTATION
     Dosage: 500 MG, QD
     Route: 048
  3. CALCIUM 600+VIT D [Concomitant]
     Indication: MINERAL SUPPLEMENTATION
     Dosage: 600 MG, BID
     Route: 048
  4. DEXAMETHASONE [Concomitant]
     Dosage: 2 MG, QD
     Route: 048
  5. FENTANYL [Concomitant]
     Indication: PAIN
     Dosage: 25 MCG/HR, EVERY 72 HOURS
     Route: 062
  6. HYDROCHLOROTHIAZIDE [Concomitant]
     Dosage: 25 MG, QD
     Route: 048
  7. MULTIVITAMIN [Concomitant]
     Indication: VITAMIN SUPPLEMENTATION
     Dosage: UNK, QD
     Route: 048
  8. VITAMIN E-400 [Concomitant]
     Indication: VITAMIN SUPPLEMENTATION
     Dosage: 400 IU, QD
     Route: 048
  9. FISH OIL [Concomitant]
     Indication: VITAMIN SUPPLEMENTATION
     Dosage: 1000 MG, QD
     Route: 048

REACTIONS (4)
  - Muscle contractions involuntary [Recovering/Resolving]
  - Back pain [Recovering/Resolving]
  - Local swelling [Recovering/Resolving]
  - Malaise [Recovering/Resolving]
